FAERS Safety Report 7421505-5 (Version None)
Quarter: 2011Q2

REPORT INFORMATION
  Report Type: 
  Country: None (occurrence: None)
  Receive Date: 20110418
  Receipt Date: 20110408
  Transmission Date: 20111010
  Serious: Yes (Hospitalization, Other)
  Sender: FDA-Public Use
  Company Number: US-ASTRAZENECA-2010SE40937

PATIENT
  Age: 71 Year
  Sex: Male
  Weight: 90.7 kg

DRUGS (7)
  1. TOPROL-XL [Suspect]
     Route: 048
  2. NEXIUM [Suspect]
     Indication: GASTRIC ULCER
     Route: 048
  3. TOPROL-XL [Suspect]
     Indication: HYPERTENSION
     Route: 048
  4. ASPIRIN [Concomitant]
  5. TOPROL-XL [Suspect]
     Dosage: TWO TIMES A DAY
     Route: 048
  6. CRESTOR [Suspect]
     Route: 048
  7. LISINOPRIL AND HYDROCHLOROTHIAZIDE [Concomitant]

REACTIONS (13)
  - ULCER HAEMORRHAGE [None]
  - ABDOMINAL PAIN UPPER [None]
  - CARDIAC DISORDER [None]
  - MEMORY IMPAIRMENT [None]
  - HYPERTENSION [None]
  - SPEECH DISORDER [None]
  - DIARRHOEA [None]
  - CAROTID ARTERY OCCLUSION [None]
  - HAEMORRHAGIC STROKE [None]
  - JOINT SWELLING [None]
  - ARRHYTHMIA [None]
  - BLOOD PRESSURE DECREASED [None]
  - WEIGHT DECREASED [None]
